FAERS Safety Report 14374893 (Version 1)
Quarter: 2018Q1

REPORT INFORMATION
  Report Type: Spontaneous
  Country: CA (occurrence: CA)
  Receive Date: 20180111
  Receipt Date: 20180111
  Transmission Date: 20180509
  Serious: Yes (Hospitalization, Other)
  Sender: FDA-Public Use
  Company Number: CA-BAYER-2018-001388

PATIENT
  Age: 22 Year
  Sex: Female

DRUGS (2)
  1. RIVAROXABAN [Suspect]
     Active Substance: RIVAROXABAN
     Dosage: 20 MG, QD
     Route: 048
  2. LEVONORGESTREL. [Suspect]
     Active Substance: LEVONORGESTREL
     Indication: MENORRHAGIA
     Dosage: UNK

REACTIONS (7)
  - Iron deficiency anaemia [None]
  - Off label use of device [None]
  - Menorrhagia [Recovered/Resolved]
  - Device use issue [None]
  - Drug ineffective for unapproved indication [None]
  - Off label use [None]
  - Pulmonary embolism [None]
